FAERS Safety Report 24068510 (Version 3)
Quarter: 2024Q3

REPORT INFORMATION
  Report Type: Report from Study
  Country: IT (occurrence: IT)
  Receive Date: 20240710
  Receipt Date: 20240710
  Transmission Date: 20241017
  Serious: No
  Sender: ROCHE
  Company Number: IT-ROCHE-3497100

PATIENT
  Age: 63 Year
  Sex: Male
  Weight: 62.0 kg

DRUGS (10)
  1. ALECTINIB [Suspect]
     Active Substance: ALECTINIB
     Indication: Non-small cell lung cancer
     Route: 048
     Dates: start: 20230117
  2. DEXAMETHASONE [Concomitant]
     Active Substance: DEXAMETHASONE
     Route: 048
     Dates: start: 20230117
  3. MOVICOL [Concomitant]
     Active Substance: POLYETHYLENE GLYCOL 3350\POTASSIUM CHLORIDE\SODIUM BICARBONATE\SODIUM CHLORIDE
     Route: 048
  4. PAROXETINE [Concomitant]
     Active Substance: PAROXETINE
     Indication: Depression
     Route: 048
     Dates: start: 20230214
  5. PREDNISONE [Concomitant]
     Active Substance: PREDNISONE
     Route: 048
     Dates: start: 20230921
  6. MINOCYCLINE [Concomitant]
     Active Substance: MINOCYCLINE HYDROCHLORIDE
     Indication: Rash
     Route: 048
     Dates: start: 20231102, end: 20231117
  7. MINOCYCLINE [Concomitant]
     Active Substance: MINOCYCLINE HYDROCHLORIDE
     Dates: start: 20231130, end: 20231215
  8. MINOCYCLINE [Concomitant]
     Active Substance: MINOCYCLINE HYDROCHLORIDE
     Dates: start: 20240102, end: 20240117
  9. LEVETIRACETAM [Concomitant]
     Active Substance: LEVETIRACETAM
     Route: 048
     Dates: start: 20230227, end: 20231130
  10. DENOSUMAB [Concomitant]
     Active Substance: DENOSUMAB

REACTIONS (1)
  - Back pain [Recovered/Resolved]

NARRATIVE: CASE EVENT DATE: 20231122
